FAERS Safety Report 5546745-1 (Version None)
Quarter: 2007Q4

REPORT INFORMATION
  Report Type: 
  Country: None (occurrence: None)
  Receive Date: 20071207
  Receipt Date: 20071207
  Transmission Date: 20080405
  Serious: Yes (Hospitalization)
  Sender: FDA-Public Use
  Company Number: None

PATIENT
  Sex: Female
  Weight: 50 kg

DRUGS (1)
  1. TAXOL [Suspect]
     Dosage: 261 MG

REACTIONS (3)
  - BLOOD MAGNESIUM DECREASED [None]
  - DRUG HYPERSENSITIVITY [None]
  - NAUSEA [None]
